FAERS Safety Report 6451463-1 (Version None)
Quarter: 2009Q4

REPORT INFORMATION
  Report Type: 
  Country: None (occurrence: None)
  Receive Date: 20091123
  Receipt Date: 20090303
  Transmission Date: 20100525
  Serious: No
  Sender: FDA-Public Use
  Company Number: US-BRISTOL-MYERS SQUIBB COMPANY-14531891

PATIENT
  Sex: Female

DRUGS (1)
  1. AVALIDE [Suspect]
     Dosage: 1 DOSAGE FORM = 300/25 (UNITS NOT MENTIONED)

REACTIONS (1)
  - BLOOD PRESSURE INADEQUATELY CONTROLLED [None]
